FAERS Safety Report 5041049-8 (Version None)
Quarter: 2006Q2

REPORT INFORMATION
  Report Type: 
  Country: None (occurrence: None)
  Receive Date: 20060630
  Receipt Date: 20060630
  Transmission Date: 20061013
  Serious: Yes (Hospitalization)
  Sender: FDA-Public Use
  Company Number: None

PATIENT
  Age: 77 Year
  Sex: Male
  Weight: 107.5 kg

DRUGS (2)
  1. GLIPAZIDE [Suspect]
     Indication: HYPERLIPIDAEMIA
     Dosage: 20 MG X 6 DOSES PO
     Route: 048
  2. SIMVASTATIN [Suspect]
     Indication: DIABETES MELLITUS
     Dosage: 2.5 MG X 6 DOSES PO
     Route: 048

REACTIONS (4)
  - DEPRESSION [None]
  - INTENTIONAL OVERDOSE [None]
  - MULTIPLE DRUG OVERDOSE [None]
  - PAIN [None]
